FAERS Safety Report 8420472-5 (Version None)
Quarter: 2012Q2

REPORT INFORMATION
  Report Type: 
  Country: None (occurrence: None)
  Receive Date: 20120608
  Receipt Date: 20120605
  Transmission Date: 20120825
  Serious: Yes (Other)
  Sender: FDA-Public Use
  Company Number: US-AMGEN-USASP2012035074

PATIENT
  Age: 63 Year
  Sex: Male

DRUGS (2)
  1. XGEVA [Suspect]
     Indication: OSTEOLYSIS
     Dates: start: 20120424
  2. XGEVA [Suspect]
     Indication: MULTIPLE MYELOMA

REACTIONS (2)
  - TRAUMATIC FRACTURE [None]
  - GAIT DISTURBANCE [None]
